FAERS Safety Report 6227961-2 (Version None)
Quarter: 2009Q2

REPORT INFORMATION
  Report Type: 
  Country: None (occurrence: None)
  Receive Date: 20090611
  Receipt Date: 20090527
  Transmission Date: 20091009
  Serious: Yes (Death)
  Sender: FDA-Public Use
  Company Number: ES-GENENTECH-284145

PATIENT
  Age: 32 Year
  Sex: Male

DRUGS (2)
  1. XOLAIR [Suspect]
     Indication: RESPIRATORY FAILURE
     Dosage: 375 MG, UNKNOWN
     Route: 058
  2. PREDNISONE [Concomitant]
     Indication: ASPERGILLOSIS
     Dosage: 60 MG, UNK

REACTIONS (2)
  - DEATH [None]
  - FORCED EXPIRATORY VOLUME DECREASED [None]
